FAERS Safety Report 20601342 (Version 3)
Quarter: 2022Q2

REPORT INFORMATION
  Report Type: Spontaneous
  Country: FI (occurrence: FI)
  Receive Date: 20220316
  Receipt Date: 20220406
  Transmission Date: 20220721
  Serious: Yes (Hospitalization, Other)
  Sender: FDA-Public Use
  Company Number: FI-TOLMAR, INC.-22FI033199

PATIENT
  Age: 8 Decade
  Sex: Male

DRUGS (10)
  1. ELIGARD [Suspect]
     Active Substance: LEUPROLIDE ACETATE
     Indication: Prostate cancer
     Dosage: 45 MILLIGRAM, Q 6 MONTH
     Route: 058
  2. RIFAMPIN [Suspect]
     Active Substance: RIFAMPIN
     Indication: Tuberculosis
     Dosage: 600 MILLIGRAM, QD
     Route: 048
  3. ACETAMINOPHEN [Concomitant]
     Active Substance: ACETAMINOPHEN
     Indication: Pain
     Dosage: 1 GRAM, PRN
  4. ACETAMINOPHEN\CODEINE PHOSPHATE [Concomitant]
     Active Substance: ACETAMINOPHEN\CODEINE PHOSPHATE
     Indication: Pain
     Dosage: 500 MG/30 MG
  5. RABEPRAZOLE [Concomitant]
     Active Substance: RABEPRAZOLE
     Indication: Gastrooesophageal reflux disease
     Dosage: 20 MILLIGRAM, QD
  6. PANTOPRAZOLE [Concomitant]
     Active Substance: PANTOPRAZOLE
     Indication: Gastrooesophageal reflux disease
     Dosage: 40 MILLIGRAM
  7. ALFUZOSIN [Concomitant]
     Active Substance: ALFUZOSIN
     Indication: Polyuria
     Dosage: 10 MILLIGRAM, QD
  8. ALFUZOSIN [Concomitant]
     Active Substance: ALFUZOSIN
     Indication: Urinary incontinence
  9. TAMSULOSIN [Concomitant]
     Active Substance: TAMSULOSIN
     Indication: Polyuria
     Dosage: 0.4 MILLIGRAM, QD
  10. TAMSULOSIN [Concomitant]
     Active Substance: TAMSULOSIN
     Indication: Urinary incontinence
     Dosage: 0.4 MILLIGRAM, BID

REACTIONS (5)
  - Tuberculosis [Unknown]
  - Drug interaction [Unknown]
  - Injection site mass [Unknown]
  - Polyuria [Unknown]
  - Dysuria [Unknown]
